FAERS Safety Report 8512853 (Version 2)
Quarter: 2014Q2

REPORT INFORMATION
  Report Type: Spontaneous
  Country: US (occurrence: US)
  Receive Date: 20120413
  Receipt Date: 20140616
  Transmission Date: 20141212
  Serious: No
  Sender: FDA-Public Use
  Company Number: US-ASTRAZENECA-2011SE74373

PATIENT
  Age: 94 Year
  Sex: Male

DRUGS (11)
  1. NEXIUM [Suspect]
     Indication: GASTRIC PH DECREASED
     Route: 048
     Dates: start: 2013, end: 2014
  2. TOPROL XL [Suspect]
     Indication: BLOOD PRESSURE ABNORMAL
     Route: 048
     Dates: start: 2012
  3. PRILOSEC [Suspect]
     Route: 048
  4. FLOMAX [Concomitant]
     Indication: PROSTATIC DISORDER
  5. ASPIRIN [Concomitant]
     Indication: BLOOD PRESSURE ABNORMAL
  6. LUTEIN [Concomitant]
     Indication: MACULAR DEGENERATION
  7. ZOCOR [Concomitant]
     Indication: BLOOD PRESSURE ABNORMAL
  8. VITAMIN B6 [Concomitant]
     Indication: SUPPLEMENTATION THERAPY
  9. ALPHAGAN [Concomitant]
     Indication: EYE DISORDER
  10. TRUSOPT [Concomitant]
     Indication: EYE DISORDER
  11. LUMIGAN [Concomitant]
     Indication: EYE DISORDER

REACTIONS (5)
  - Gastrooesophageal reflux disease [Unknown]
  - Abdominal pain upper [Not Recovered/Not Resolved]
  - Insomnia [Not Recovered/Not Resolved]
  - Expired product administered [Unknown]
  - Drug dose omission [Not Recovered/Not Resolved]
